FAERS Safety Report 4972959-5 (Version None)
Quarter: 2006Q2

REPORT INFORMATION
  Report Type: 
  Country: None (occurrence: None)
  Receive Date: 20060410
  Receipt Date: 20060330
  Transmission Date: 20061013
  Serious: Yes (Hospitalization)
  Sender: FDA-Public Use
  Company Number: 222520

PATIENT
  Age: 57 Year
  Sex: Female
  Weight: 56.2 kg

DRUGS (3)
  1. AVASTIN [Suspect]
     Indication: ADENOCARCINOMA PANCREAS
     Dosage: 10 MG/KG, INTRAVENOUS
     Route: 042
     Dates: start: 20060216
  2. GEMCITABINE [Suspect]
     Indication: ADENOCARCINOMA PANCREAS
     Dosage: 1000 MG/KG, INTRAVENOUS
     Route: 042
     Dates: start: 20060216
  3. OXALIPLATIN                (OXALIPLATIN) [Suspect]
     Indication: ADENOCARCINOMA PANCREAS
     Dosage: 100 MG/M2, INTRAVENOUS
     Route: 042
     Dates: start: 20060216

REACTIONS (17)
  - ALANINE AMINOTRANSFERASE INCREASED [None]
  - ANOREXIA [None]
  - ASPARTATE AMINOTRANSFERASE INCREASED [None]
  - ASTHENIA [None]
  - BLOOD GLUCOSE INCREASED [None]
  - BLOOD UREA INCREASED [None]
  - DECREASED APPETITE [None]
  - DEHYDRATION [None]
  - DIZZINESS [None]
  - FATIGUE [None]
  - HAEMOGLOBIN DECREASED [None]
  - HEADACHE [None]
  - NAUSEA [None]
  - NEUTROPENIA [None]
  - RED BLOOD CELLS URINE POSITIVE [None]
  - VOMITING [None]
  - WHITE BLOOD CELL COUNT DECREASED [None]
